FAERS Safety Report 5266417-0 (Version None)
Quarter: 2007Q1

REPORT INFORMATION
  Report Type: 
  Country: None (occurrence: None)
  Receive Date: 20070315
  Receipt Date: 20070208
  Transmission Date: 20070707
  Serious: No
  Sender: FDA-Public Use
  Company Number: US-GLAXOSMITHKLINE-A0638924A

PATIENT
  Sex: Male

DRUGS (3)
  1. FLOVENT [Suspect]
     Indication: COUGH
     Dosage: 44MCG TWICE PER DAY
     Route: 055
  2. SINGULAIR [Concomitant]
  3. XOPENEX [Concomitant]

REACTIONS (2)
  - ABNORMAL BEHAVIOUR [None]
  - ANGER [None]
